FAERS Safety Report 4405359-7 (Version None)
Quarter: 2004Q3

REPORT INFORMATION
  Report Type: 
  Country: None (occurrence: None)
  Receive Date: 20040716
  Receipt Date: 20040706
  Transmission Date: 20050211
  Serious: Yes (Hospitalization)
  Sender: FDA-Public Use
  Company Number: 2004046019

PATIENT
  Age: 75 Year
  Sex: Female

DRUGS (15)
  1. GABAPENTIN [Suspect]
     Indication: ILL-DEFINED DISORDER
     Dosage: ORAL
     Route: 048
     Dates: start: 20040101
  2. RISPERDAL [Concomitant]
  3. INSULIN [Concomitant]
  4. OXAZEPAM [Concomitant]
  5. METFORMIN HCL [Concomitant]
  6. GLICLAZIDE (GLICLAZIDE) [Concomitant]
  7. CLOPIDOGREL BISULFATE [Concomitant]
  8. FUROSEMIDE [Concomitant]
  9. AMLODIPINE BESYLATE [Concomitant]
  10. LANSOPRAZOLE [Concomitant]
  11. ATORVASTATIN CALCIUM [Concomitant]
  12. ATENOLOL [Concomitant]
  13. POTASSIUM CHLORIDE [Concomitant]
  14. FERROUS SULFATE TAB [Concomitant]
  15. DOCUSATE SODIUM (DOCUSATE SODIUM) [Concomitant]

REACTIONS (2)
  - AUTONOMIC NERVOUS SYSTEM IMBALANCE [None]
  - HALLUCINATION, AUDITORY [None]
